FAERS Safety Report 20340849 (Version 1)
Quarter: 2022Q1

REPORT INFORMATION
  Report Type: Report from Study
  Country: DE (occurrence: None)
  Receive Date: 20220117
  Receipt Date: 20220117
  Transmission Date: 20220424
  Serious: Yes (Hospitalization)
  Sender: FDA-Public Use
  Company Number: DE-ROCHE-2822853

PATIENT
  Age: 70 Year
  Sex: Female
  Weight: 75 kg

DRUGS (7)
  1. TRASTUZUMAB [Suspect]
     Active Substance: TRASTUZUMAB
     Indication: Breast cancer metastatic
     Dosage: ON 29/APR/2021, DATE OF LAST DOSE PRIOR TO SAE/AESI
     Route: 042
     Dates: start: 20210429
  2. PERTUZUMAB [Suspect]
     Active Substance: PERTUZUMAB
     Indication: Breast cancer metastatic
     Dosage: ON 29/APR/2021, DATE OF LAST DOSE PRIOR TO SAE/AESI
     Route: 042
     Dates: start: 20210429
  3. MESALAMINE [Concomitant]
     Active Substance: MESALAMINE
     Dates: start: 20130101
  4. ACETAMINOPHEN [Concomitant]
     Active Substance: ACETAMINOPHEN
     Dates: start: 20210426, end: 20210429
  5. CALCIGEN [Concomitant]
     Dates: start: 20211104
  6. FLUPREDNIDENE ACETATE [Concomitant]
     Active Substance: FLUPREDNIDENE ACETATE
     Dates: start: 20210722
  7. XGEVA [Concomitant]
     Active Substance: DENOSUMAB
     Dates: start: 20211014

REACTIONS (1)
  - Infusion related reaction [Recovered/Resolved]

NARRATIVE: CASE EVENT DATE: 20210429
